FAERS Safety Report 18960289 (Version 1)
Quarter: 2021Q1

REPORT INFORMATION
  Report Type: Spontaneous
  Country: IT (occurrence: IT)
  Receive Date: 20210303
  Receipt Date: 20210303
  Transmission Date: 20210420
  Serious: Yes (Hospitalization)
  Sender: FDA-Public Use
  Company Number: IT-ASTRAZENECA-2021A085197

PATIENT
  Age: 60 Year
  Sex: Female

DRUGS (7)
  1. OMALIZUMAB. [Suspect]
     Active Substance: OMALIZUMAB
     Indication: ASTHMA
     Dosage: 300 MG EVERY FOUR WEEKS
     Route: 058
     Dates: start: 201503
  2. MONTELUKAST [Suspect]
     Active Substance: MONTELUKAST SODIUM
     Indication: ASTHMA
     Dosage: BEFORE MARCH 2015
     Route: 065
  3. AZITHROMYCIN ANHYDROUS. [Concomitant]
     Active Substance: AZITHROMYCIN ANHYDROUS
     Indication: BRONCHIECTASIS
     Dates: start: 201603
  4. BUDESONIDE/FORMOTEROL [Suspect]
     Active Substance: BUDESONIDE\FORMOTEROL
     Indication: ASTHMA
     Dosage: 160 MCG/4.5 MCG, FOUR PUFFS/DAY, BEFORE MARCH 2015
     Route: 055
  5. THEOPHYLLINE [Suspect]
     Active Substance: THEOPHYLLINE ANHYDROUS
     Indication: ASTHMA
     Dosage: 300 MG TABLETS BIS IN DIE, BEFORE MARCH 2015
     Route: 048
  6. SALBUTAMOL [Suspect]
     Active Substance: ALBUTEROL
     Indication: ASTHMA
     Dosage: AT LEAST FIVE TIMES A DAY, BEFORE MARCH 2015
     Route: 055
  7. TIOTROPIUM RESPIMAT [Suspect]
     Active Substance: TIOTROPIUM
     Indication: ASTHMA
     Dosage: 2.5 MCG TWO PUFFS DAILY, BEFORE MARCH 2015
     Route: 055

REACTIONS (2)
  - Drug ineffective [Recovering/Resolving]
  - Asthma [Recovering/Resolving]
